FAERS Safety Report 4329573-4 (Version None)
Quarter: 2004Q2

REPORT INFORMATION
  Report Type: 
  Country: None (occurrence: None)
  Receive Date: 20040401
  Receipt Date: 20031201
  Transmission Date: 20050107
  Serious: Yes (Death, Life-Threatening, Hospitalization)
  Sender: FDA-Public Use
  Company Number: BE-ROCHE-353048

PATIENT
  Age: 70 Year
  Sex: Male
  Weight: 108 kg

DRUGS (3)
  1. PEG-INTERFERON ALFA 2A (RO 25-8310) [Suspect]
     Route: 058
     Dates: start: 20030930, end: 20031128
  2. RIBAVIRIN [Suspect]
     Dosage: DOSE REPORTED AS 6 X 200.
     Route: 048
     Dates: start: 20030930, end: 20031128
  3. AMANTADIN [Suspect]
     Dosage: DOSE REPORTED AS 2 X 100.
     Route: 048
     Dates: start: 20030930, end: 20031128

REACTIONS (4)
  - CONFUSIONAL STATE [None]
  - LEUKOPENIA [None]
  - PYREXIA [None]
  - SEPSIS [None]
